FAERS Safety Report 7829016 (Version 2)
Quarter: 2014Q4

REPORT INFORMATION
  Report Type: Spontaneous
  Country: US (occurrence: US)
  Receive Date: 20110225
  Receipt Date: 20141201
  Transmission Date: 20150529
  Serious: Yes (Hospitalization, Other)
  Sender: FDA-Public Use
  Company Number: US-ROCHE-734197

PATIENT
  Age: 19 Year
  Sex: Male
  Weight: 59 kg

DRUGS (4)
  1. ACCUTANE [Suspect]
     Active Substance: ISOTRETINOIN
     Route: 048
     Dates: start: 198909, end: 199003
  2. ACCUTANE [Suspect]
     Active Substance: ISOTRETINOIN
     Route: 048
  3. ACCUTANE [Suspect]
     Active Substance: ISOTRETINOIN
     Route: 048
     Dates: start: 19970303, end: 199708
  4. ACCUTANE [Suspect]
     Active Substance: ISOTRETINOIN
     Indication: ACNE
     Dosage: 40 MG QAM, 20 MG QPM
     Route: 048
     Dates: start: 19861124, end: 198703

REACTIONS (12)
  - Epistaxis [Unknown]
  - Colitis ulcerative [Unknown]
  - Intestinal obstruction [Unknown]
  - Nephrolithiasis [Unknown]
  - Anal fistula [Unknown]
  - Perirectal abscess [Unknown]
  - Suicidal ideation [Unknown]
  - Melanocytic naevus [Unknown]
  - Depression [Unknown]
  - Gastrointestinal injury [Unknown]
  - Inflammatory bowel disease [Unknown]
  - Dry skin [Unknown]

NARRATIVE: CASE EVENT DATE: 199009
